FAERS Safety Report 8388314-4 (Version None)
Quarter: 2012Q2

REPORT INFORMATION
  Report Type: 
  Country: None (occurrence: None)
  Receive Date: 20120525
  Receipt Date: 20120518
  Transmission Date: 20120825
  Serious: Yes (Other)
  Sender: FDA-Public Use
  Company Number: US-BAXTER-2012BAX006330

PATIENT
  Sex: Female
  Weight: 73 kg

DRUGS (18)
  1. SUPRANE [Suspect]
     Route: 055
     Dates: start: 20120426
  2. MIDAZOLAM [Suspect]
     Route: 042
     Dates: start: 20120426
  3. HYDROCHLOROTHIAZIDE [Concomitant]
     Route: 065
  4. METHYLPREDNISOLONE ACETATE [Concomitant]
     Dates: start: 20120426
  5. MANNITOL [Concomitant]
     Dates: start: 20120426
  6. PROPOFOL [Suspect]
     Route: 042
     Dates: start: 20120426
  7. LISINOPRIL [Concomitant]
     Route: 065
  8. BICARBONATE [Concomitant]
     Route: 065
  9. MYCOPHENOLATE MOFETIL [Suspect]
     Route: 042
     Dates: start: 20120426, end: 20120430
  10. ROCURONIUM BROMIDE [Suspect]
     Route: 042
     Dates: start: 20120426
  11. VITAMIN D [Concomitant]
     Route: 065
  12. EPHEDRINE [Suspect]
     Route: 042
     Dates: start: 20120426
  13. LIPITOR [Concomitant]
     Route: 065
  14. ONDANSETRON [Concomitant]
     Dates: start: 20120426
  15. FENTANYL [Suspect]
     Route: 042
     Dates: start: 20120426
  16. MORPHINE [Suspect]
     Route: 042
     Dates: start: 20120426
  17. CEFAZOLIN [Concomitant]
     Route: 065
     Dates: start: 20120426
  18. FUROSEMIDE [Concomitant]
     Dates: start: 20120426

REACTIONS (6)
  - LETHARGY [None]
  - CHILLS [None]
  - ENCEPHALOPATHY [None]
  - BRADYCARDIA [None]
  - PYREXIA [None]
  - MENTAL STATUS CHANGES [None]
